FAERS Safety Report 4619943-9 (Version None)
Quarter: 2005Q1

REPORT INFORMATION
  Report Type: 
  Country: None (occurrence: None)
  Receive Date: 20050328
  Receipt Date: 20050315
  Transmission Date: 20050727
  Serious: Yes (Other)
  Sender: FDA-Public Use
  Company Number: DE-ABBOTT-05P-062-0294168-00

PATIENT
  Age: 40 Year
  Sex: Female

DRUGS (6)
  1. ERGENYL TABLETS [Suspect]
     Indication: SCHIZOAFFECTIVE DISORDER
     Route: 048
     Dates: start: 20020201, end: 20021122
  2. ERGENYL TABLETS [Suspect]
  3. OLANZAPINE [Interacting]
     Indication: SCHIZOAFFECTIVE DISORDER
     Route: 048
     Dates: start: 20000101, end: 20021122
  4. OLANZAPINE [Interacting]
     Route: 048
     Dates: start: 20021203, end: 20021204
  5. OLANZAPINE [Interacting]
     Route: 048
     Dates: start: 20021205
  6. METHADONE HYDROCHLORIDE [Concomitant]
     Indication: DRUG DEPENDENCE
     Route: 048
     Dates: start: 20000101

REACTIONS (4)
  - DRUG INTERACTION [None]
  - HEPATITIS [None]
  - JAUNDICE [None]
  - THROMBOCYTOPENIA [None]
